FAERS Safety Report 4402065-X (Version None)
Quarter: 2004Q3

REPORT INFORMATION
  Report Type: 
  Country: None (occurrence: None)
  Receive Date: 20040714
  Receipt Date: 20040625
  Transmission Date: 20050211
  Serious: Yes (Hospitalization, Other)
  Sender: FDA-Public Use
  Company Number: USA040671179

PATIENT
  Age: 34 Year
  Sex: Female

DRUGS (3)
  1. ZYPREXA [Suspect]
     Indication: BIPOLAR DISORDER
     Dosage: 30 MG DAY
     Dates: start: 20010901, end: 20040501
  2. LITHIUM [Concomitant]
  3. SEROQUEL [Concomitant]

REACTIONS (2)
  - ASTHENIA [None]
  - PANCREATITIS [None]
